FAERS Safety Report 23397314 (Version 2)
Quarter: 2024Q3

REPORT INFORMATION
  Report Type: Spontaneous
  Country: US (occurrence: US)
  Receive Date: 20240112
  Receipt Date: 20240923
  Transmission Date: 20241017
  Serious: No
  Sender: SANOFI AVENTIS
  Company Number: US-SA-SAC20240105000554

PATIENT
  Age: 1 Year
  Sex: Male

DRUGS (2)
  1. DUPIXENT [Suspect]
     Active Substance: DUPILUMAB
     Indication: Eczema
     Dosage: 200 MG, QM
     Route: 058
     Dates: start: 20231121
  2. DUPIXENT [Suspect]
     Active Substance: DUPILUMAB
     Indication: Hypersensitivity

REACTIONS (8)
  - Rhinorrhoea [Not Recovered/Not Resolved]
  - Gait inability [Unknown]
  - Cough [Unknown]
  - Pain [Unknown]
  - Hordeolum [Unknown]
  - Ear infection [Unknown]
  - Product use in unapproved indication [Unknown]
  - Device use issue [Unknown]

NARRATIVE: CASE EVENT DATE: 20231101
